FAERS Safety Report 5144145-X (Version None)
Quarter: 2006Q4

REPORT INFORMATION
  Report Type: 
  Country: None (occurrence: None)
  Receive Date: 20061106
  Receipt Date: 20060718
  Transmission Date: 20070319
  Serious: Yes (Hospitalization)
  Sender: FDA-Public Use
  Company Number: GB-ROCHE-455813

PATIENT
  Age: 131 Week
  Sex: Male

DRUGS (4)
  1. DACLIZUMAB [Suspect]
     Route: 065
     Dates: start: 20060425, end: 20060425
  2. DACLIZUMAB [Suspect]
     Route: 065
     Dates: start: 20060509, end: 20060509
  3. MYCOPHENOLATE MOFETIL [Suspect]
     Route: 048
     Dates: start: 20060425
  4. FK506 [Suspect]
     Route: 048
     Dates: start: 20060425

REACTIONS (1)
  - CYTOMEGALOVIRUS INFECTION [None]
